FAERS Safety Report 16906440 (Version 1)
Quarter: 2019Q4

REPORT INFORMATION
  Report Type: Other
  Country: GB (occurrence: GB)
  Receive Date: 20191011
  Receipt Date: 20191011
  Transmission Date: 20200122
  Serious: No
  Sender: FDA-Public Use
  Company Number: GB-LUPIN PHARMACEUTICALS INC.-2019-00296

PATIENT
  Age: 11 Year
  Sex: Male
  Weight: 36 kg

DRUGS (2)
  1. CEFALEXIN [Concomitant]
     Active Substance: CEPHALEXIN
     Indication: ILL-DEFINED DISORDER
     Dosage: 2X5ML SPOON 3 TIMES/DAY
     Route: 065
     Dates: start: 20190108
  2. CEFALEXIN [Suspect]
     Active Substance: CEPHALEXIN
     Indication: ILL-DEFINED DISORDER
     Dosage: UNK
     Route: 065
     Dates: start: 20190109

REACTIONS (1)
  - Abdominal pain [Recovering/Resolving]

NARRATIVE: CASE EVENT DATE: 20190109
